FAERS Safety Report 9057429 (Version 1)
Quarter: 2013Q1

REPORT INFORMATION
  Report Type: Spontaneous
  Country: US (occurrence: US)
  Receive Date: 20130204
  Receipt Date: 20130204
  Transmission Date: 20140127
  Serious: Yes (Hospitalization)
  Sender: FDA-Public Use
  Company Number: US-B.I. PHARMACEUTICALS,INC./RIDGEFIELD-2013-BI-02669BP

PATIENT
  Sex: Female
  Weight: 64 kg

DRUGS (2)
  1. PRADAXA [Suspect]
     Indication: ATRIAL FIBRILLATION
     Dosage: 300 MG
     Route: 048
     Dates: start: 201105, end: 201212
  2. PRADAXA [Suspect]
     Dosage: 150 MG
     Route: 048
     Dates: start: 201212

REACTIONS (1)
  - Herpes zoster [Recovered/Resolved with Sequelae]
